FAERS Safety Report 7408588-3 (Version None)
Quarter: 2011Q2

REPORT INFORMATION
  Report Type: 
  Country: None (occurrence: None)
  Receive Date: 20110412
  Receipt Date: 20110407
  Transmission Date: 20111010
  Serious: No
  Sender: FDA-Public Use
  Company Number: US-TEVA-275515USA

PATIENT
  Sex: Female

DRUGS (3)
  1. ORTHO TRI-CYCLEN [Concomitant]
     Indication: CONTRACEPTION
     Dates: start: 20100101
  2. PLAN B ONE-STEP [Suspect]
     Indication: POST COITAL CONTRACEPTION
     Dosage: 1.5 MILLIGRAM;
     Route: 048
     Dates: start: 20110404, end: 20110404
  3. AMOXICILLIN [Concomitant]
     Indication: KIDNEY INFECTION

REACTIONS (1)
  - MENSTRUATION IRREGULAR [None]
